FAERS Safety Report 18527180 (Version 2)
Quarter: 2020Q4

REPORT INFORMATION
  Report Type: Report from Study
  Country: US (occurrence: US)
  Receive Date: 20201120
  Receipt Date: 20201126
  Transmission Date: 20210114
  Serious: Yes (Hospitalization)
  Sender: FDA-Public Use
  Company Number: US-JNJFOC-20201126488

PATIENT
  Age: 23 Year
  Sex: Female
  Weight: 61.29 kg

DRUGS (3)
  1. INFLIXIMAB, RECOMBINANT [Suspect]
     Active Substance: INFLIXIMAB
     Indication: INFLAMMATORY BOWEL DISEASE
     Route: 042
     Dates: start: 20060228, end: 20150501
  2. STELARA [Concomitant]
     Active Substance: USTEKINUMAB
     Dates: end: 20191213
  3. ENTYVIO [Concomitant]
     Active Substance: VEDOLIZUMAB
     Dates: end: 20200416

REACTIONS (2)
  - Colitis [Recovered/Resolved]
  - Wound drainage [Recovered/Resolved]

NARRATIVE: CASE EVENT DATE: 20200601
